FAERS Safety Report 8396051-5 (Version None)
Quarter: 2012Q2

REPORT INFORMATION
  Report Type: 
  Country: None (occurrence: None)
  Receive Date: 20120530
  Receipt Date: 20120523
  Transmission Date: 20120825
  Serious: Yes (Death, Hospitalization)
  Sender: FDA-Public Use
  Company Number: BR-ROCHE-1051356

PATIENT
  Age: 48 Year
  Sex: Female
  Weight: 89 kg

DRUGS (5)
  1. XOLAIR [Suspect]
     Indication: ASTHMA
     Route: 058
     Dates: start: 20120101
  2. FLUTICASONE PROPIONATE/SALMETEROL [Concomitant]
     Route: 065
  3. SINGULAIR [Concomitant]
     Route: 065
  4. DUOVENT [Concomitant]
     Route: 065
  5. PREDNISONE TAB [Concomitant]
     Route: 065

REACTIONS (2)
  - SUDDEN DEATH [None]
  - MALAISE [None]
